FAERS Safety Report 9677712 (Version 2)
Quarter: 2014Q2

REPORT INFORMATION
  Report Type: Report from Study
  Country: US (occurrence: US)
  Receive Date: 20131108
  Receipt Date: 20140613
  Transmission Date: 20141212
  Serious: Yes (Death, Hospitalization, Other)
  Sender: FDA-Public Use
  Company Number: US-TEVA-442375USA

PATIENT
  Age: 70 Year
  Sex: Female
  Weight: 79.7 kg

DRUGS (2)
  1. DAUNORUBICIN [Suspect]
     Indication: ACUTE MYELOID LEUKAEMIA
     Dosage: IV DAYS 1-3X, 1-2 CYCLES
     Route: 042
     Dates: start: 20131004, end: 20131010
  2. CYTARABINE [Suspect]
     Indication: ACUTE MYELOID LEUKAEMIA
     Dosage: IV DAYS 1-7X  1-2 CYCLES
     Route: 042
     Dates: start: 20131004, end: 20131010

REACTIONS (2)
  - Large intestinal obstruction [Fatal]
  - Acute respiratory distress syndrome [Unknown]
